FAERS Safety Report 24970611 (Version 1)
Quarter: 2025Q1

REPORT INFORMATION
  Report Type: Spontaneous
  Country: US (occurrence: US)
  Receive Date: 20250214
  Receipt Date: 20250214
  Transmission Date: 20250409
  Serious: No
  Sender: BAYER HEALTHCARE PHARMACEUTICALS INC.
  Company Number: US-BAYER-2025A018576

PATIENT
  Sex: Female

DRUGS (1)
  1. MIRENA [Suspect]
     Active Substance: LEVONORGESTREL
     Indication: Migraine with aura
     Dosage: 20?G/DAY
     Route: 015
     Dates: start: 202110

REACTIONS (2)
  - Headache [Not Recovered/Not Resolved]
  - Device use issue [None]
